FAERS Safety Report 17614963 (Version 2)
Quarter: 2020Q2

REPORT INFORMATION
  Report Type: Spontaneous
  Country: GB (occurrence: GB)
  Receive Date: 20200402
  Receipt Date: 20200619
  Transmission Date: 20200713
  Serious: Yes (Other)
  Sender: FDA-Public Use
  Company Number: GB-ROCHE-2575929

PATIENT
  Age: 55 Year
  Sex: Female
  Weight: 63 kg

DRUGS (4)
  1. CAPECITABINE. [Suspect]
     Active Substance: CAPECITABINE
     Indication: BREAST CANCER METASTATIC
     Dosage: ON 11/FEB/2020, MOST RECENT DOSE
     Route: 065
     Dates: start: 20191210
  2. NERATINIB [Suspect]
     Active Substance: NERATINIB
     Indication: BREAST CANCER METASTATIC
  3. NERATINIB [Suspect]
     Active Substance: NERATINIB
     Indication: BREAST CANCER
     Dosage: ON 11/FEB/2020, RECEIVED MOST RECENT DOSE
     Route: 065
     Dates: start: 20191210
  4. DENOSUMAB [Concomitant]
     Active Substance: DENOSUMAB
     Indication: BREAST CANCER METASTATIC

REACTIONS (5)
  - Pneumonitis [Recovered/Resolved]
  - Off label use [Unknown]
  - Palmar-plantar erythrodysaesthesia syndrome [Recovering/Resolving]
  - Peripheral sensory neuropathy [Not Recovered/Not Resolved]
  - Product use in unapproved indication [Unknown]

NARRATIVE: CASE EVENT DATE: 20191210
